FAERS Safety Report 25419105 (Version 1)
Quarter: 2025Q2

REPORT INFORMATION
  Report Type: Report from Study
  Country: GR (occurrence: GR)
  Receive Date: 20250610
  Receipt Date: 20250610
  Transmission Date: 20250717
  Serious: Yes (Hospitalization)
  Sender: TAKEDA
  Company Number: GR-Stemline Therapeutics, Inc.-2024ST004441

PATIENT
  Age: 87 Year
  Sex: Female
  Weight: 50 kg

DRUGS (11)
  1. BORTEZOMIB [Suspect]
     Active Substance: BORTEZOMIB
     Indication: Plasma cell myeloma
     Dosage: UNK UNK, 1/WEEK
     Dates: start: 202407, end: 20250506
  2. SELINEXOR [Suspect]
     Active Substance: SELINEXOR
     Indication: Plasma cell myeloma
     Dosage: 100 MILLIGRAM, 1/WEEK
     Dates: start: 202406
  3. SELINEXOR [Suspect]
     Active Substance: SELINEXOR
     Dosage: 3 DOSAGE FORM, 1/WEEK
     Dates: start: 20240702, end: 202407
  4. SELINEXOR [Suspect]
     Active Substance: SELINEXOR
     Dosage: 40 MILLIGRAM, 1/WEEK
     Dates: start: 202407, end: 20250507
  5. NEXIUM [Concomitant]
     Active Substance: ESOMEPRAZOLE MAGNESIUM
     Indication: Irritable bowel syndrome
     Dosage: 1 DOSAGE FORM, QD
  6. XGEVA [Concomitant]
     Active Substance: DENOSUMAB
     Indication: Osteoporosis
     Dosage: UNK UNK, MONTHLY
  7. JARDIANCE [Concomitant]
     Active Substance: EMPAGLIFLOZIN
     Indication: Blood glucose abnormal
     Dosage: 1 DOSAGE FORM, QD
  8. VALTREX [Concomitant]
     Active Substance: VALACYCLOVIR HYDROCHLORIDE
     Indication: Product used for unknown indication
     Dosage: 1 DOSAGE FORM, MONTHLY
  9. SULFAMETHOXAZOLE\TRIMETHOPRIM [Concomitant]
     Active Substance: SULFAMETHOXAZOLE\TRIMETHOPRIM
     Indication: Antibiotic therapy
  10. Flucostatin [Concomitant]
     Indication: Antifungal treatment
  11. Collyrium [Concomitant]
     Indication: Glaucoma

REACTIONS (7)
  - Peripheral ischaemia [Recovering/Resolving]
  - Vomiting [Unknown]
  - Stomach mass [Recovered/Resolved]
  - Abdominal pain [Recovered/Resolved]
  - Diarrhoea [Recovered/Resolved]
  - Vomiting [Not Recovered/Not Resolved]
  - Weight decreased [Unknown]

NARRATIVE: CASE EVENT DATE: 20240701
